FAERS Safety Report 5323593-9 (Version None)
Quarter: 2007Q2

REPORT INFORMATION
  Report Type: 
  Country: None (occurrence: None)
  Receive Date: 20070508
  Receipt Date: 20070430
  Transmission Date: 20071010
  Serious: Yes (Other)
  Sender: FDA-Public Use
  Company Number: 2007RL000140

PATIENT
  Age: 67 Year
  Sex: Male
  Weight: 90.7194 kg

DRUGS (4)
  1. RYTHMOL [Suspect]
     Indication: ATRIAL FIBRILLATION
     Dosage: 325 GM;BID;PO
     Route: 048
     Dates: start: 20060901
  2. WARFARIN [Concomitant]
  3. ASPIRIN CHILDREN [Concomitant]
  4. ATENOLOL [Concomitant]

REACTIONS (4)
  - HERPES OPHTHALMIC [None]
  - MYALGIA [None]
  - OPTIC NERVE DISORDER [None]
  - PAIN [None]
